FAERS Safety Report 8082901-9 (Version None)
Quarter: 2012Q1

REPORT INFORMATION
  Report Type: 
  Country: None (occurrence: None)
  Receive Date: 20120127
  Receipt Date: 20110214
  Transmission Date: 20120608
  Serious: No
  Sender: FDA-Public Use
  Company Number: US-ABBOTT-11P-163-0705158-00

PATIENT
  Age: 41 Year
  Sex: Female

DRUGS (5)
  1. SOMA [Concomitant]
     Indication: RELAXATION THERAPY
     Dosage: 350 MG 3-4 TABLETS
  2. HUMIRA [Suspect]
     Indication: ANKYLOSING SPONDYLITIS
     Dates: start: 20101201
  3. SOMA [Concomitant]
     Indication: INSOMNIA
  4. KLONOPIN [Concomitant]
     Indication: INSOMNIA
     Dosage: AT BEDTIME
  5. MAXALT [Concomitant]
     Indication: MIGRAINE

REACTIONS (6)
  - SINUSITIS [None]
  - SINUS HEADACHE [None]
  - NASAL CONGESTION [None]
  - CHILLS [None]
  - TOOTHACHE [None]
  - RHINORRHOEA [None]
